FAERS Safety Report 20395660 (Version 1)
Quarter: 2022Q1

REPORT INFORMATION
  Report Type: Spontaneous
  Country: None (occurrence: GB)
  Receive Date: 20220130
  Receipt Date: 20220130
  Transmission Date: 20220423
  Serious: Yes (Other)
  Sender: FDA-Public Use
  Company Number: GB-Ascend Therapeutics US, LLC-2124440

PATIENT
  Age: 47 Year
  Sex: Female

DRUGS (4)
  1. ESTROGEL [Suspect]
     Active Substance: ESTRADIOL
     Indication: Menopause
     Route: 065
  2. ESTROGEL [Suspect]
     Active Substance: ESTRADIOL
  3. ESTRADIOL [Suspect]
     Active Substance: ESTRADIOL
     Route: 065
  4. SERETIDE(FLUTICASONE PROPIONATE, SALMETEROL XINAFOATE) [Concomitant]
     Route: 065

REACTIONS (3)
  - Application site rash [Not Recovered/Not Resolved]
  - Anxiety [Not Recovered/Not Resolved]
  - Rash macular [Unknown]
